FAERS Safety Report 4333465-4 (Version None)
Quarter: 2004Q2

REPORT INFORMATION
  Report Type: 
  Country: None (occurrence: None)
  Receive Date: 20040401
  Receipt Date: 20040323
  Transmission Date: 20050107
  Serious: Yes (Hospitalization, Other)
  Sender: FDA-Public Use
  Company Number: HQWYE097114AUG03

PATIENT
  Age: 59 Year
  Sex: Male
  Weight: 76.64 kg

DRUGS (1)
  1. RAPAMUNE [Suspect]
     Indication: PROPHYLAXIS AGAINST TRANSPLANT REJECTION
     Dosage: 4 MG 1 X PER 1 DAY, ORAL
     Route: 048
     Dates: start: 20030324, end: 20030718

REACTIONS (6)
  - DRUG TOXICITY [None]
  - GRAFT DYSFUNCTION [None]
  - LYMPHOCELE [None]
  - MICROANGIOPATHY [None]
  - RENAL IMPAIRMENT [None]
  - THROMBOTIC MICROANGIOPATHY [None]
